FAERS Safety Report 7749922-4 (Version None)
Quarter: 2011Q3

REPORT INFORMATION
  Report Type: 
  Country: None (occurrence: None)
  Receive Date: 20110914
  Receipt Date: 20110902
  Transmission Date: 20111222
  Serious: Yes (Hospitalization, Other)
  Sender: FDA-Public Use
  Company Number: US-US-EMD SERONO, INC.-7081057

PATIENT
  Sex: Female

DRUGS (2)
  1. REBIF [Suspect]
     Indication: MULTIPLE SCLEROSIS
     Route: 058
     Dates: start: 20100928
  2. REBIF [Suspect]
     Route: 058

REACTIONS (9)
  - VIRAL INFECTION [None]
  - THROMBOSIS [None]
  - VIRAL UPPER RESPIRATORY TRACT INFECTION [None]
  - ABDOMINAL INFECTION [None]
  - DEHYDRATION [None]
  - PHLEBITIS [None]
  - DECREASED IMMUNE RESPONSIVENESS [None]
  - TACHYCARDIA [None]
  - CHEST PAIN [None]
